FAERS Safety Report 24069230 (Version 1)
Quarter: 2024Q3

REPORT INFORMATION
  Report Type: Spontaneous
  Country: SG (occurrence: SG)
  Receive Date: 20240710
  Receipt Date: 20240710
  Transmission Date: 20241017
  Serious: No
  Sender: ROCHE
  Company Number: SG-ROCHE-3514569

PATIENT
  Age: 60 Year
  Sex: Female
  Weight: 82.0 kg

DRUGS (1)
  1. PHESGO [Suspect]
     Active Substance: HYALURONIDASE-ZZXF\PERTUZUMAB\TRASTUZUMAB
     Indication: Product used for unknown indication
     Dosage: LAST DOSE TOOK ON THE 15/ NOV/ 2023.
     Route: 065

REACTIONS (1)
  - Decreased appetite [Not Recovered/Not Resolved]
